FAERS Safety Report 6017361-2 (Version None)
Quarter: 2008Q4

REPORT INFORMATION
  Report Type: 
  Country: None (occurrence: None)
  Receive Date: 20081223
  Receipt Date: 20081216
  Transmission Date: 20090506
  Serious: Yes (Other)
  Sender: FDA-Public Use
  Company Number: US-BAYER-200814882BCC

PATIENT
  Age: 51 Year
  Sex: Female
  Weight: 100 kg

DRUGS (3)
  1. ALKA SELTZER PLUS EFFERVESCENT COLD [Suspect]
     Indication: NASAL DECONGESTION THERAPY
     Dosage: TOTAL DAILY DOSE: 4 DF  UNIT DOSE: 1 DF
     Route: 048
     Dates: start: 20081116
  2. BENADRYL [Concomitant]
  3. ASPIRIN [Concomitant]

REACTIONS (1)
  - GASTRIC HAEMORRHAGE [None]
